FAERS Safety Report 17252516 (Version 4)
Quarter: 2020Q2

REPORT INFORMATION
  Report Type: Report from Study
  Country: US (occurrence: US)
  Receive Date: 20200109
  Receipt Date: 20200618
  Transmission Date: 20200713
  Serious: No
  Sender: FDA-Public Use
  Company Number: NVSC2020US003047

PATIENT
  Sex: Female

DRUGS (2)
  1. BEOVU [Suspect]
     Active Substance: BROLUCIZUMAB-DBLL
     Dosage: UNK, QD
     Route: 047
     Dates: start: 20200103
  2. BEOVU [Suspect]
     Active Substance: BROLUCIZUMAB-DBLL
     Indication: NEOVASCULAR AGE-RELATED MACULAR DEGENERATION
     Dosage: UNK, QD
     Route: 047
     Dates: start: 20190102

REACTIONS (8)
  - Ocular hyperaemia [Recovering/Resolving]
  - Injection site pain [Unknown]
  - Vision blurred [Recovered/Resolved]
  - Injection site discomfort [Unknown]
  - Product dose omission [Not Recovered/Not Resolved]
  - Eye pain [Recovered/Resolved]
  - Visual impairment [Not Recovered/Not Resolved]
  - Inappropriate schedule of product administration [Unknown]
